FAERS Safety Report 7981808-2 (Version None)
Quarter: 2011Q4

REPORT INFORMATION
  Report Type: 
  Country: None (occurrence: None)
  Receive Date: 20111212
  Receipt Date: 20111205
  Transmission Date: 20120403
  Serious: No
  Sender: FDA-Public Use
  Company Number: 2011SP057124

PATIENT
  Age: 50 Year

DRUGS (1)
  1. SAPHRIS [Suspect]
     Dosage: 2 MG; HS, 5 MG; HS

REACTIONS (1)
  - SWELLING [None]
